FAERS Safety Report 25649736 (Version 1)
Quarter: 2025Q3

REPORT INFORMATION
  Report Type: Report from Study
  Country: US (occurrence: US)
  Receive Date: 20250806
  Receipt Date: 20250806
  Transmission Date: 20251021
  Serious: No
  Sender: MALLINCKRODT
  Company Number: US-MALLINCKRODT-MNK202501891

PATIENT
  Age: 3 Month
  Sex: Female
  Weight: 6 kg

DRUGS (4)
  1. CORTICOTROPIN [Suspect]
     Active Substance: CORTICOTROPIN
     Indication: Infantile spasms
     Route: 030
     Dates: start: 20250325, end: 20250501
  2. PEPCID [Concomitant]
     Active Substance: FAMOTIDINE
  3. VITAMIN B [Concomitant]
     Active Substance: VITAMIN B
  4. DEPAKOTE [Concomitant]
     Active Substance: DIVALPROEX SODIUM

REACTIONS (5)
  - Musculoskeletal stiffness [Unknown]
  - Hypersomnia [Unknown]
  - Injection site discolouration [Unknown]
  - Irritability [Unknown]
  - Absence of immediate treatment response [Not Recovered/Not Resolved]

NARRATIVE: CASE EVENT DATE: 20250101
